FAERS Safety Report 10009638 (Version 2)
Quarter: 2014Q1

REPORT INFORMATION
  Report Type: Spontaneous
  Country: US (occurrence: US)
  Receive Date: 20140312
  Receipt Date: 20140312
  Transmission Date: 20141002
  Serious: No
  Sender: FDA-Public Use
  Company Number: US-INCYTE CORPORATION-2012IN001873

PATIENT
  Age: 86 Year
  Sex: Male

DRUGS (14)
  1. JAKAFI [Suspect]
     Indication: MYELOFIBROSIS
     Dosage: 20 MG, BID
     Route: 048
     Dates: start: 201208, end: 20121008
  2. JAKAFI [Suspect]
     Indication: SPLENOMEGALY
     Dosage: 20 MG, QD
     Route: 048
     Dates: start: 20121016
  3. JAKAFI [Suspect]
     Dosage: 10 MG, BID
     Route: 048
     Dates: start: 2012
  4. COREG [Concomitant]
     Dosage: 12.5 MG, QD
  5. FOLIC ACID [Concomitant]
  6. OMEGA 3 FISH OIL [Concomitant]
  7. SPIRONOLACTONE [Concomitant]
  8. LEVOTHYROXINE [Concomitant]
     Dosage: 150 MCG, QD
  9. HYOSCYAMINE [Concomitant]
     Dosage: 0.125 MG, QD
  10. Q-TUSSIN DM [Concomitant]
     Indication: COUGH
     Dosage: UNK, PRN
  11. GLUCOSAMINE PLUS [Concomitant]
  12. VITAMIN C [Concomitant]
     Dosage: 100 MG, QD
  13. ALLEGRA [Concomitant]
     Dosage: 180 MG, QD
  14. LACTOBACILLUS [Concomitant]
     Dosage: 10 BILLION ACTIVE CULTURES DAILY, PRN

REACTIONS (4)
  - Haemoglobin decreased [Not Recovered/Not Resolved]
  - Blood count abnormal [Not Recovered/Not Resolved]
  - Asthenia [Unknown]
  - Fatigue [Unknown]
